FAERS Safety Report 6810958-9 (Version None)
Quarter: 2010Q2

REPORT INFORMATION
  Report Type: 
  Country: None (occurrence: None)
  Receive Date: 20100630
  Receipt Date: 20081115
  Transmission Date: 20101027
  Serious: No
  Sender: FDA-Public Use
  Company Number: US-PFIZER INC-2008071976

PATIENT
  Sex: Female
  Weight: 59.1 kg

DRUGS (3)
  1. ESTRING [Suspect]
     Indication: MENOPAUSAL SYMPTOMS
     Dates: start: 20080812, end: 20080824
  2. FOSAMAX [Concomitant]
  3. ACECLOFENAC [Concomitant]

REACTIONS (2)
  - VAGINAL DISCHARGE [None]
  - VAGINAL ODOUR [None]
